FAERS Safety Report 18264976 (Version 1)
Quarter: 2020Q3

REPORT INFORMATION
  Report Type: Spontaneous
  Country: US (occurrence: US)
  Receive Date: 20200914
  Receipt Date: 20200914
  Transmission Date: 20201103
  Serious: No
  Sender: FDA-Public Use
  Company Number: US-UNIQUE PHARMACEUTICAL LABORATORIES-2020RIS00099

PATIENT
  Age: 54 Year
  Sex: Female
  Weight: 65.76 kg

DRUGS (4)
  1. CETIRIZINE HYDROCHLORIDE. [Suspect]
     Active Substance: CETIRIZINE HYDROCHLORIDE
     Indication: PRURITUS
     Dosage: 20 MG, ^AT ONCE^; ^USUALLY AT NIGHT^ AS NEEDED
     Route: 048
     Dates: start: 2019
  2. CETIRIZINE HYDROCHLORIDE. [Suspect]
     Active Substance: CETIRIZINE HYDROCHLORIDE
     Dosage: 10 MG, ^USUALLY AT NIGHT^  AS NEEDED
     Route: 048
  3. CETIRIZINE HYDROCHLORIDE. [Suspect]
     Active Substance: CETIRIZINE HYDROCHLORIDE
     Dosage: 10 MG, IN THE AFTERNOON AS NEEDED
     Route: 048
     Dates: start: 20200227
  4. THYROXIZINE [Concomitant]
     Indication: HYPOTHYROIDISM
     Dosage: UNK, 1X/DAY

REACTIONS (4)
  - Overdose [Recovered/Resolved]
  - Somnolence [Unknown]
  - Fatigue [Not Recovered/Not Resolved]
  - Off label use [Not Recovered/Not Resolved]

NARRATIVE: CASE EVENT DATE: 2019
